FAERS Safety Report 4558616-8 (Version None)
Quarter: 2005Q1

REPORT INFORMATION
  Report Type: 
  Country: None (occurrence: None)
  Receive Date: 20050119
  Receipt Date: 20050106
  Transmission Date: 20050727
  Serious: Yes (Other)
  Sender: FDA-Public Use
  Company Number: 2005012975

PATIENT
  Age: 45 Year
  Sex: Female
  Weight: 103.8737 kg

DRUGS (9)
  1. DELTASONE [Suspect]
     Indication: ILL-DEFINED DISORDER
     Dosage: ORAL
     Route: 048
     Dates: start: 19970101
  2. LEVOTHYROXINE SODIUM [Concomitant]
  3. ROSUVASTATIN (ROSUVASTATIN) [Concomitant]
  4. FOLIC ACID [Concomitant]
  5. TRAZODONE (TRAZODONE) [Concomitant]
  6. WARFARIN SODIUM [Concomitant]
  7. INFLIXIMAB (INFLIXIMAB) [Concomitant]
  8. RANITIDINE [Concomitant]
  9. AMITRIPTYLINE HCL [Concomitant]

REACTIONS (6)
  - DIVERTICULITIS [None]
  - FALL [None]
  - PERIPHERAL NERVE OPERATION [None]
  - POST PROCEDURAL COMPLICATION [None]
  - RUPTURED DIVERTICULUM OF COLON [None]
  - TREMOR [None]
